FAERS Safety Report 7769671-6 (Version None)
Quarter: 2011Q3

REPORT INFORMATION
  Report Type: 
  Country: None (occurrence: None)
  Receive Date: 20110922
  Receipt Date: 20100803
  Transmission Date: 20111222
  Serious: No
  Sender: FDA-Public Use
  Company Number: US-ASTRAZENECA-2007UW21510

PATIENT
  Age: 38 Year
  Sex: Female
  Weight: 82.6 kg

DRUGS (1)
  1. SEROQUEL [Suspect]
     Indication: INSOMNIA
     Dosage: 100 MG - 200 MG
     Route: 048
     Dates: start: 20020101, end: 20031101

REACTIONS (6)
  - DIABETIC COMPLICATION [None]
  - GASTROOESOPHAGEAL REFLUX DISEASE [None]
  - HYPERTENSION [None]
  - TYPE 2 DIABETES MELLITUS [None]
  - INSOMNIA [None]
  - HEADACHE [None]
